FAERS Safety Report 4419452-6 (Version None)
Quarter: 2004Q3

REPORT INFORMATION
  Report Type: 
  Country: None (occurrence: None)
  Receive Date: 20040809
  Receipt Date: 20040127
  Transmission Date: 20050211
  Serious: No
  Sender: FDA-Public Use
  Company Number: US-GLAXOSMITHKLINE-A0496493A

PATIENT
  Age: 55 Year
  Sex: Male

DRUGS (1)
  1. PAXIL [Suspect]
     Indication: PANIC REACTION
     Dosage: 15MG UNKNOWN
     Route: 048
     Dates: start: 20040101

REACTIONS (4)
  - CHILLS [None]
  - NIGHT SWEATS [None]
  - POLYDIPSIA [None]
  - POLYURIA [None]
